FAERS Safety Report 5131074-0 (Version None)
Quarter: 2006Q3

REPORT INFORMATION
  Report Type: 
  Country: None (occurrence: None)
  Receive Date: 20060829
  Receipt Date: 20060621
  Transmission Date: 20061208
  Serious: No
  Sender: FDA-Public Use
  Company Number: S06-USA-02426-01

PATIENT
  Sex: Male

DRUGS (1)
  1. CAMPRAL [Suspect]
     Dates: start: 20060601

REACTIONS (1)
  - DIARRHOEA [None]
